FAERS Safety Report 8529374-7 (Version None)
Quarter: 2012Q2

REPORT INFORMATION
  Report Type: 
  Country: None (occurrence: None)
  Receive Date: 20120409
  Receipt Date: 20110926
  Transmission Date: 20120825
  Serious: Yes (Other)
  Sender: FDA-Public Use
  Company Number: 2011-409

PATIENT
  Age: 62 Year
  Sex: Female

DRUGS (1)
  1. FAZACLO ODT [Suspect]
     Dosage: 200 MG QD, ORAL
     Route: 048
     Dates: start: 20110812, end: 20110831

REACTIONS (1)
  - AGRANULOCYTOSIS [None]
